FAERS Safety Report 9928892 (Version 3)
Quarter: 2014Q3

REPORT INFORMATION
  Report Type: Spontaneous
  Country: US (occurrence: None)
  Receive Date: 20140221
  Receipt Date: 20140714
  Transmission Date: 20150326
  Serious: Yes (Death)
  Sender: FDA-Public Use
  Company Number: 2014-US-001835

PATIENT
  Age: 55 Year
  Sex: Male

DRUGS (3)
  1. OXYCODONE (OXYCODONE HYDROCHLORIDE) (OXYCODONE) [Concomitant]
     Active Substance: OXYCODONE
  2. CLONAZEPAM. [Concomitant]
     Active Substance: CLONAZEPAM
  3. XYREM [Suspect]
     Active Substance: SODIUM OXYBATE
     Indication: INSOMNIA
     Route: 048
     Dates: start: 200902

REACTIONS (2)
  - Death [None]
  - Off label use [None]

NARRATIVE: CASE EVENT DATE: 20131212
